FAERS Safety Report 11745621 (Version 1)
Quarter: 2015Q4

REPORT INFORMATION
  Report Type: Spontaneous
  Country: US (occurrence: None)
  Receive Date: 20151116
  Receipt Date: 20151116
  Transmission Date: 20160304
  Serious: Yes (Other)
  Sender: FDA-Public Use
  Company Number: None

PATIENT
  Age: 54 Year
  Sex: Male
  Weight: 87.09 kg

DRUGS (6)
  1. LOSARTAN 50MG TORRENT AND AUROBINDO [Suspect]
     Active Substance: LOSARTAN
     Indication: HYPERTENSION
     Dosage: 1 PILL A DAY APPROXIMATELY 8 MONTHS
     Route: 048
  2. CO-Q10 [Concomitant]
  3. MULTI-VITAMIN [Concomitant]
     Active Substance: .ALPHA.-TOCOPHEROL ACETATE, DL-\ASCORBIC ACID\CYANOCOBALAMIN\FLUORIDE ION\FOLIC ACID\NIACIN\PYRIDOXINE\RIBOFLAVIN\THIAMINE\VITAMIN A\VITAMIN D
  4. GINSENG [Concomitant]
     Active Substance: ASIAN GINSENG
  5. ARGININE [Concomitant]
     Active Substance: ARGININE
  6. CARNATHINE [Concomitant]

REACTIONS (4)
  - Lung disorder [None]
  - Asthma exercise induced [None]
  - Pain [None]
  - Feeling abnormal [None]

NARRATIVE: CASE EVENT DATE: 20150616
